FAERS Safety Report 13030555 (Version 2)
Quarter: 2016Q4

REPORT INFORMATION
  Report Type: Spontaneous
  Country: FR (occurrence: FR)
  Receive Date: 20161215
  Receipt Date: 20161221
  Transmission Date: 20170207
  Serious: Yes (Hospitalization, Other)
  Sender: FDA-Public Use
  Company Number: FR-PFIZER INC-2016579642

PATIENT
  Age: 75 Year
  Sex: Female
  Weight: 57 kg

DRUGS (6)
  1. ZELITREX [Suspect]
     Active Substance: VALACYCLOVIR HYDROCHLORIDE
     Dosage: 1000 MG, 1X/DAY
     Route: 048
  2. IMBRUVICA [Suspect]
     Active Substance: IBRUTINIB
     Indication: CHRONIC LYMPHOCYTIC LEUKAEMIA
     Dosage: 420 MG, 1X/DAY
     Route: 048
     Dates: start: 20160729, end: 20161122
  3. CORDARONE [Suspect]
     Active Substance: AMIODARONE HYDROCHLORIDE
     Indication: ATRIAL FIBRILLATION
     Dosage: 200 MG, 1X/DAY
     Route: 048
  4. LOSARTAN POTASSIUM. [Suspect]
     Active Substance: LOSARTAN POTASSIUM
     Dosage: 50 MG, 1X/DAY
     Route: 048
     Dates: end: 20161122
  5. SEROPLEX [Suspect]
     Active Substance: ESCITALOPRAM OXALATE
     Dosage: 20 MG, 1X/DAY
     Route: 048
  6. PANTOPRAZOLE [Suspect]
     Active Substance: PANTOPRAZOLE SODIUM
     Dosage: 40 MG, 1X/DAY
     Route: 048

REACTIONS (5)
  - Fall [Recovered/Resolved]
  - Cerebellar haemorrhage [Recovered/Resolved]
  - Dizziness [Recovered/Resolved]
  - Orthostatic hypotension [Recovered/Resolved]
  - Craniocerebral injury [Recovered/Resolved]

NARRATIVE: CASE EVENT DATE: 20161121
